FAERS Safety Report 20297875 (Version 1)
Quarter: 2022Q1

REPORT INFORMATION
  Report Type: Spontaneous
  Country: NO (occurrence: NO)
  Receive Date: 20220105
  Receipt Date: 20220105
  Transmission Date: 20220423
  Serious: Yes (Life-Threatening)
  Sender: FDA-Public Use
  Company Number: None

PATIENT
  Age: 58 Year
  Sex: Female

DRUGS (7)
  1. PREDNISOLONE [Interacting]
     Active Substance: PREDNISOLONE
     Indication: Iridocyclitis
     Dosage: 5 MG, H02AB06 - PREDNISOLONSUBTANCE NAME : PREDNISOLONE ,
     Route: 048
  2. PREDNISOLONE [Interacting]
     Active Substance: PREDNISOLONE
     Indication: Uveitis
  3. ELIQUIS [Interacting]
     Active Substance: APIXABAN
     Indication: Pulmonary embolism
     Dosage: 5 MG, B01AF02 - APIXABAN SUBTANCE NAME: APIXABAN,
     Route: 048
     Dates: start: 20211112, end: 20211208
  4. Calcigran [Concomitant]
     Indication: Osteoporosis
     Route: 048
  5. SUMATRIPTAN SUCCINATE [Concomitant]
     Active Substance: SUMATRIPTAN SUCCINATE
     Indication: Migraine
     Dosage: 1 DOSAGE FORM (100 MG) IF HAVING A MIGRAINE ATTACK, 100 MG, N02CC01 - SUMATRIPTANSUBTANCE NAME : SUM
     Route: 048
     Dates: end: 20211208
  6. PANTOPRAZOLE SODIUM [Concomitant]
     Active Substance: PANTOPRAZOLE SODIUM
     Indication: Prophylaxis
     Dosage: 20 MG, A02BC02 - PANTOPRAZOLSUBTANCE NAME : PANTOPRAZOLE ,
     Route: 048
  7. Aerius [Concomitant]
     Indication: Hypersensitivity
     Dosage: 5 MG, R06AX27 - DESLORATADINESUBTANCE NAME: DESLORATADINE,
     Route: 048

REACTIONS (2)
  - Drug interaction [Unknown]
  - Subarachnoid haemorrhage [Unknown]

NARRATIVE: CASE EVENT DATE: 20211208
